FAERS Safety Report 4688644-3 (Version None)
Quarter: 2005Q2

REPORT INFORMATION
  Report Type: 
  Country: None (occurrence: None)
  Receive Date: 20050610
  Receipt Date: 20050610
  Transmission Date: 20051028
  Serious: Yes (Death)
  Sender: FDA-Public Use
  Company Number: None

PATIENT
  Sex: Male
  Weight: 87.3 kg

DRUGS (2)
  1. LAUCOVORIN [Suspect]
     Indication: RECTAL CANCER
     Dosage: 500 MG/M2 IV OVER 2 HOURS ON DAY 1 WEEKLY X 6, EVERY 8 WEEKS FOR 3 CYCLES
     Route: 042
     Dates: start: 20050418
  2. FLUOROURACIL [Suspect]
     Indication: RECTAL CANCER
     Dosage: 500 MG/M2 IV BOLUS ON DAY 1 WEEKLY X 6., EVERY 8 WEEKS FOR 3 CYCLES
     Route: 042
     Dates: start: 20050418

REACTIONS (1)
  - ARTERIOSCLEROSIS [None]
